FAERS Safety Report 5864374-7 (Version None)
Quarter: 2008Q3

REPORT INFORMATION
  Report Type: 
  Country: None (occurrence: None)
  Receive Date: 20080829
  Receipt Date: 20080619
  Transmission Date: 20090109
  Serious: No
  Sender: FDA-Public Use
  Company Number: US-ABBOTT-08P-163-0458845-00

PATIENT
  Sex: Female

DRUGS (9)
  1. SIMCOR [Suspect]
     Indication: BLOOD CHOLESTEROL INCREASED
     Route: 048
     Dates: start: 20080528, end: 20080615
  2. LISINOPRIL [Concomitant]
     Indication: DRUG USE FOR UNKNOWN INDICATION
  3. FUROSEMIDE [Concomitant]
     Indication: DRUG USE FOR UNKNOWN INDICATION
  4. OXYGEN [Concomitant]
     Indication: DRUG USE FOR UNKNOWN INDICATION
  5. NEBULIZER [Concomitant]
     Indication: DRUG USE FOR UNKNOWN INDICATION
  6. NADOLOL [Concomitant]
     Indication: DRUG USE FOR UNKNOWN INDICATION
  7. CALCIUM VITAMIN [Concomitant]
     Indication: DRUG USE FOR UNKNOWN INDICATION
  8. CORICIDIN [Concomitant]
     Indication: DRUG USE FOR UNKNOWN INDICATION
  9. COLCHICINE [Concomitant]
     Indication: GOUT

REACTIONS (5)
  - ABDOMINAL DISTENSION [None]
  - BACK PAIN [None]
  - BLOOD GLUCOSE INCREASED [None]
  - HEADACHE [None]
  - PALPITATIONS [None]
